FAERS Safety Report 15263649 (Version 1)
Quarter: 2018Q3

REPORT INFORMATION
  Report Type: Spontaneous
  Country: CA (occurrence: CA)
  Receive Date: 20180810
  Receipt Date: 20180810
  Transmission Date: 20181010
  Serious: Yes (Hospitalization, Other)
  Sender: FDA-Public Use
  Company Number: CA-ALKEM LABORATORIES LIMITED-CA-ALKEM-2018-00927

PATIENT
  Age: 2 Year
  Sex: Male

DRUGS (1)
  1. LAMOTRIGINE. [Suspect]
     Active Substance: LAMOTRIGINE
     Indication: ACCIDENTAL EXPOSURE TO PRODUCT
     Dosage: 0.8 G, (61.6 MG/KG)
     Route: 065

REACTIONS (2)
  - Generalised tonic-clonic seizure [Unknown]
  - Overdose [Unknown]
